FAERS Safety Report 25437952 (Version 1)
Quarter: 2025Q2

REPORT INFORMATION
  Report Type: Spontaneous
  Country: US (occurrence: US)
  Receive Date: 20250616
  Receipt Date: 20250616
  Transmission Date: 20250716
  Serious: No
  Sender: BEIGENE
  Company Number: US-BEIGENE-BGN-2025-008493

PATIENT
  Age: 87 Year

DRUGS (4)
  1. BRUKINSA [Suspect]
     Active Substance: ZANUBRUTINIB
     Indication: Chronic lymphocytic leukaemia
     Dosage: 320 MILLIGRAM, QD
  2. ALLOPURINOL [Concomitant]
     Active Substance: ALLOPURINOL
  3. ASPIRIN [Concomitant]
     Active Substance: ASPIRIN
  4. PROBENECID [Concomitant]
     Active Substance: PROBENECID

REACTIONS (2)
  - Rash pruritic [Not Recovered/Not Resolved]
  - Impaired healing [Not Recovered/Not Resolved]
